FAERS Safety Report 15233492 (Version 1)
Quarter: 2018Q3

REPORT INFORMATION
  Report Type: Spontaneous
  Country: US (occurrence: US)
  Receive Date: 20180709
  Receipt Date: 20180709
  Transmission Date: 20181010
  Serious: No
  Sender: FDA-Public Use
  Company Number: None

PATIENT
  Age: 67 Year
  Sex: Male
  Weight: 97.2 kg

DRUGS (2)
  1. DAYTIME SEVERE COLD AND FLU RELIEF MAXIMUM STRENGTH [Suspect]
     Active Substance: ACETAMINOPHEN\DEXTROMETHORPHAN HYDROBROMIDE\GUAIFENESIN\PHENYLEPHRINE HYDROCHLORIDE
     Indication: OROPHARYNGEAL PAIN
     Route: 048
     Dates: start: 20180709
  2. DAYTIME SEVERE COLD AND FLU RELIEF MAXIMUM STRENGTH [Suspect]
     Active Substance: ACETAMINOPHEN\DEXTROMETHORPHAN HYDROBROMIDE\GUAIFENESIN\PHENYLEPHRINE HYDROCHLORIDE
     Indication: NASOPHARYNGITIS
     Route: 048
     Dates: start: 20180709

REACTIONS (2)
  - Physical product label issue [None]
  - Drug administration error [None]

NARRATIVE: CASE EVENT DATE: 20180709
